FAERS Safety Report 11987540 (Version 1)
Quarter: 2016Q1

REPORT INFORMATION
  Report Type: Spontaneous
  Country: US (occurrence: None)
  Receive Date: 20160201
  Receipt Date: 20160201
  Transmission Date: 20160526
  Serious: No
  Sender: FDA-Public Use
  Company Number: None

PATIENT

DRUGS (2)
  1. INSULIN ASPART (INSULIN ASPART) [Suspect]
     Active Substance: INSULIN ASPART
  2. INSULIN GLARGINE (INSULIN GLARGINE) [Suspect]
     Active Substance: INSULIN GLARGINE

REACTIONS (2)
  - Intercepted drug dispensing error [None]
  - Product label confusion [None]
